FAERS Safety Report 6529867-8 (Version None)
Quarter: 2010Q1

REPORT INFORMATION
  Report Type: 
  Country: None (occurrence: None)
  Receive Date: 20100107
  Receipt Date: 20100104
  Transmission Date: 20100710
  Serious: Yes (Hospitalization)
  Sender: FDA-Public Use
  Company Number: A0837832A

PATIENT
  Age: 60 Year
  Sex: Male
  Weight: 113.6 kg

DRUGS (1)
  1. AVANDIA [Suspect]
     Indication: DIABETES MELLITUS
     Dosage: 4MG PER DAY
     Route: 048
     Dates: start: 20011106, end: 20040201

REACTIONS (6)
  - ANXIETY [None]
  - ASTHENIA [None]
  - CHEST PAIN [None]
  - DEPRESSION [None]
  - EARLY RETIREMENT [None]
  - MYOCARDIAL INFARCTION [None]
